FAERS Safety Report 7356622-1 (Version None)
Quarter: 2011Q1

REPORT INFORMATION
  Report Type: 
  Country: None (occurrence: None)
  Receive Date: 20110316
  Receipt Date: 20110304
  Transmission Date: 20110831
  Serious: Yes (Other)
  Sender: FDA-Public Use
  Company Number: PHHY2011US18201

PATIENT

DRUGS (11)
  1. APREPITANT [Concomitant]
  2. BEVACIZUMAB [Concomitant]
     Dosage: 5 MG/KG, UNK
  3. WARFARIN [Concomitant]
  4. FOLINIC ACID [Concomitant]
     Dosage: 400 MG/M2,
  5. HYDROCHLOROTHIAZIDE [Concomitant]
  6. MULTI-VITAMINS [Concomitant]
  7. ATENOLOL [Concomitant]
  8. DEXAMETHASONE [Concomitant]
  9. FLUOROURACIL [Suspect]
     Indication: RECTAL CANCER
     Dosage: 2.4 MG/M2, 46 H CONTINUOUS INFUSION
  10. OXALIPLATIN [Concomitant]
     Dosage: 85 MG/M2, UNK
  11. OMEPRAZOLE [Concomitant]

REACTIONS (10)
  - CONFUSIONAL STATE [None]
  - NEUROPATHY PERIPHERAL [None]
  - LETHARGY [None]
  - NEOPLASM MALIGNANT [None]
  - HYPERAMMONAEMIC ENCEPHALOPATHY [None]
  - ASTHENIA [None]
  - DISORIENTATION [None]
  - NAUSEA [None]
  - VOMITING [None]
  - DIARRHOEA [None]
